FAERS Safety Report 7354799-5 (Version None)
Quarter: 2011Q1

REPORT INFORMATION
  Report Type: 
  Country: None (occurrence: None)
  Receive Date: 20110311
  Receipt Date: 20110311
  Transmission Date: 20110831
  Serious: No
  Sender: FDA-Public Use
  Company Number: None

PATIENT
  Sex: Male
  Weight: 79 kg

DRUGS (1)
  1. FLEBOGAMMA [Suspect]
     Indication: CHRONIC LYMPHOCYTIC LEUKAEMIA
     Dosage: 20,000MG IV DRIP
     Route: 041
     Dates: start: 20101026, end: 20110309

REACTIONS (3)
  - CHILLS [None]
  - INFUSION RELATED REACTION [None]
  - TREMOR [None]
